FAERS Safety Report 6491007-1 (Version None)
Quarter: 2009Q4

REPORT INFORMATION
  Report Type: 
  Country: None (occurrence: None)
  Receive Date: 20091211
  Receipt Date: 20091126
  Transmission Date: 20100525
  Serious: Yes (Other)
  Sender: FDA-Public Use
  Company Number: IT-GENENTECH-295581

PATIENT
  Sex: Male

DRUGS (3)
  1. MABTHERA [Suspect]
     Indication: ACUTE LEUKAEMIA
     Dosage: 500 MG, ^CYCLE^
     Route: 042
     Dates: start: 20091016, end: 20091016
  2. VINCRISTINA [Concomitant]
     Indication: ACUTE LEUKAEMIA
     Dosage: UNK
     Route: 042
     Dates: start: 20091014, end: 20091016
  3. DELTACORTENE [Concomitant]
     Indication: DRUG USE FOR UNKNOWN INDICATION
     Dosage: UNK
     Route: 048
     Dates: start: 20091016, end: 20091016

REACTIONS (1)
  - TREMOR [None]
